FAERS Safety Report 11644400 (Version 1)
Quarter: 2015Q4

REPORT INFORMATION
  Report Type: Spontaneous
  Country: US (occurrence: None)
  Receive Date: 20151020
  Receipt Date: 20151020
  Transmission Date: 20160304
  Serious: Yes (Death, Other)
  Sender: FDA-Public Use
  Company Number: ADR-2015-01475

PATIENT
  Age: 42 Year
  Sex: Female

DRUGS (2)
  1. BACLOFEN INTRATHECAL [Suspect]
     Active Substance: BACLOFEN
  2. ORAL BACLOFEN [Suspect]
     Active Substance: BACLOFEN

REACTIONS (5)
  - Pneumonia [None]
  - Death [None]
  - Wound infection [None]
  - Impaired healing [None]
  - Respiratory disorder [None]
